FAERS Safety Report 16702152 (Version 1)
Quarter: 2019Q3

REPORT INFORMATION
  Report Type: Spontaneous
  Country: JP (occurrence: JP)
  Receive Date: 20190814
  Receipt Date: 20190814
  Transmission Date: 20191004
  Serious: Yes (Death, Other)
  Sender: FDA-Public Use
  Company Number: JP-JNJFOC-20190727443

PATIENT
  Age: 87 Year
  Sex: Female

DRUGS (7)
  1. IRON [Suspect]
     Active Substance: IRON
     Indication: ANAEMIA
     Route: 065
     Dates: start: 2018
  2. CELECOX [Concomitant]
     Active Substance: CELECOXIB
  3. ARTIST [Concomitant]
     Active Substance: CARVEDILOL
  4. CRESTOR [Concomitant]
     Active Substance: ROSUVASTATIN CALCIUM
  5. AMLODIN [Concomitant]
     Active Substance: AMLODIPINE BESYLATE
  6. RIVAROXABAN [Suspect]
     Active Substance: RIVAROXABAN
     Indication: ATRIAL FIBRILLATION
     Route: 048
     Dates: end: 20190711
  7. BAYASPIRIN [Interacting]
     Active Substance: ASPIRIN
     Indication: ANGINA PECTORIS
     Route: 065

REACTIONS (3)
  - Extradural haematoma [Fatal]
  - Drug interaction [Fatal]
  - Epidural haemorrhage [Fatal]

NARRATIVE: CASE EVENT DATE: 20190711
